FAERS Safety Report 13948726 (Version 2)
Quarter: 2017Q3

REPORT INFORMATION
  Report Type: Spontaneous
  Country: BR (occurrence: BR)
  Receive Date: 20170908
  Receipt Date: 20170925
  Transmission Date: 20171128
  Serious: Yes (Other)
  Sender: FDA-Public Use
  Company Number: BR-JNJFOC-20170900759

PATIENT
  Sex: Male
  Weight: 76 kg

DRUGS (8)
  1. HALDOL DECANOATO [Suspect]
     Active Substance: HALOPERIDOL DECANOATE
     Indication: BIPOLAR DISORDER
     Route: 065
     Dates: start: 201706
  2. OLANZAPINE. [Concomitant]
     Active Substance: OLANZAPINE
     Route: 065
  3. DEPAKOTE [Concomitant]
     Active Substance: DIVALPROEX SODIUM
     Route: 065
  4. CARBOLITIUM [Concomitant]
     Active Substance: LITHIUM CARBONATE
     Route: 065
  5. HALDOL DECANOATO [Suspect]
     Active Substance: HALOPERIDOL DECANOATE
     Indication: MENTAL DISORDER
     Route: 065
     Dates: start: 201706
  6. THIORIDAZINE [Concomitant]
     Active Substance: THIORIDAZINE
     Route: 065
  7. HALDOL [Suspect]
     Active Substance: HALOPERIDOL
     Indication: BIPOLAR DISORDER
     Route: 048
     Dates: start: 2011
  8. HALDOL [Suspect]
     Active Substance: HALOPERIDOL
     Indication: MENTAL DISORDER
     Route: 048
     Dates: start: 2011

REACTIONS (6)
  - Homicidal ideation [Unknown]
  - Aggression [Unknown]
  - Drug dose omission [Unknown]
  - Disease progression [Not Recovered/Not Resolved]
  - Suicide attempt [Unknown]
  - Product availability issue [Unknown]
